FAERS Safety Report 26077907 (Version 1)
Quarter: 2025Q4

REPORT INFORMATION
  Report Type: Spontaneous
  Country: US (occurrence: US)
  Receive Date: 20251122
  Receipt Date: 20251122
  Transmission Date: 20260117
  Serious: No
  Sender: MDD OPERATIONS
  Company Number: US-MDD US Operations-MDD202510-004044

PATIENT
  Age: 55 Year
  Sex: Male
  Weight: 83.4 kg

DRUGS (4)
  1. ONAPGO [Suspect]
     Active Substance: APOMORPHINE HYDROCHLORIDE
     Indication: Product used for unknown indication
     Dosage: 1.5 MILLIGRAMS PER HOUR
     Dates: start: 20250930
  2. ONAPGO [Suspect]
     Active Substance: APOMORPHINE HYDROCHLORIDE
     Dosage: 1 MILLIGRAM PER HOUR
     Dates: start: 20250929
  3. ONAPGO [Suspect]
     Active Substance: APOMORPHINE HYDROCHLORIDE
     Dosage: 1.5 MILLIGRAMS PER HOUR
     Dates: start: 20251015
  4. CARBIDOPA\LEVODOPA [Concomitant]
     Active Substance: CARBIDOPA\LEVODOPA
     Dosage: EVERY 2-3 HOURS

REACTIONS (3)
  - Musculoskeletal stiffness [Unknown]
  - Dyskinesia [Not Recovered/Not Resolved]
  - Drug ineffective [Unknown]

NARRATIVE: CASE EVENT DATE: 20250930
